FAERS Safety Report 25223603 (Version 1)
Quarter: 2025Q2

REPORT INFORMATION
  Report Type: Spontaneous
  Country: GB (occurrence: GB)
  Receive Date: 20250422
  Receipt Date: 20250422
  Transmission Date: 20250716
  Serious: Yes (Other)
  Sender: TAKEDA
  Company Number: GB-MHRA-TPP20669780C10087918YC1744721567749

PATIENT
  Age: 72 Year
  Sex: Female
  Weight: 76 kg

DRUGS (9)
  1. LISDEXAMFETAMINE DIMESYLATE [Suspect]
     Active Substance: LISDEXAMFETAMINE DIMESYLATE
     Indication: Ill-defined disorder
     Dosage: 50 MILLIGRAM, QD
     Dates: start: 20250328
  2. DIAZEPAM [Concomitant]
     Active Substance: DIAZEPAM
     Indication: Ill-defined disorder
  3. MIRTAZAPINE [Concomitant]
     Active Substance: MIRTAZAPINE
     Indication: Ill-defined disorder
  4. PRAVASTATIN [Concomitant]
     Active Substance: PRAVASTATIN
     Indication: Ill-defined disorder
  5. CALCIUM\CHOLECALCIFEROL [Concomitant]
     Active Substance: CALCIUM\CHOLECALCIFEROL
     Indication: Ill-defined disorder
     Dosage: UNK UNK, QD
     Dates: start: 20240829
  6. ESOMEPRAZOLE [Concomitant]
     Active Substance: ESOMEPRAZOLE
     Indication: Ill-defined disorder
     Dosage: UNK UNK, QD
     Dates: start: 20240829
  7. LEVOTHYROXINE [Concomitant]
     Active Substance: LEVOTHYROXINE
     Indication: Ill-defined disorder
  8. PREGABALIN [Concomitant]
     Active Substance: PREGABALIN
     Indication: Ill-defined disorder
     Dosage: UNK UNK, BID
     Dates: start: 20240829
  9. TRELEGY ELLIPTA [Concomitant]
     Active Substance: FLUTICASONE FUROATE\UMECLIDINIUM BROMIDE\VILANTEROL TRIFENATATE
     Indication: Ill-defined disorder
     Dosage: UNK UNK, QD
     Dates: start: 20241106, end: 20250311

REACTIONS (2)
  - Suicidal ideation [Recovered/Resolved]
  - Depression [Unknown]

NARRATIVE: CASE EVENT DATE: 20250415
